FAERS Safety Report 6775705-8 (Version None)
Quarter: 2010Q2

REPORT INFORMATION
  Report Type: 
  Country: None (occurrence: None)
  Receive Date: 20100617
  Receipt Date: 20100614
  Transmission Date: 20101027
  Serious: Yes (Hospitalization)
  Sender: FDA-Public Use
  Company Number: US-GILEAD-2010-0029255

PATIENT
  Sex: Female

DRUGS (13)
  1. LETAIRIS [Suspect]
     Indication: PULMONARY ARTERIAL HYPERTENSION
     Route: 048
     Dates: start: 20091007
  2. COUMADIN [Concomitant]
  3. FUROSEMIDE [Concomitant]
  4. LISINOPRIL [Concomitant]
  5. TOPROL-XL [Concomitant]
  6. CLONIDINE HCL [Concomitant]
  7. COLACE [Concomitant]
  8. LANTUS [Concomitant]
  9. METFORMIN [Concomitant]
  10. MAGNESIUM [Concomitant]
  11. ZOCOR [Concomitant]
  12. CALCIUM CARBONATE [Concomitant]
  13. POTASSIUM [Concomitant]

REACTIONS (4)
  - CARDIAC FAILURE ACUTE [None]
  - DYSPNOEA [None]
  - FLUID RETENTION [None]
  - RENAL FAILURE ACUTE [None]
